FAERS Safety Report 13003897 (Version 1)
Quarter: 2016Q4

REPORT INFORMATION
  Report Type: Report from Study
  Country: US (occurrence: US)
  Receive Date: 20161206
  Receipt Date: 20161206
  Transmission Date: 20170207
  Serious: Yes (Hospitalization)
  Sender: FDA-Public Use
  Company Number: US-EISAI MEDICAL RESEARCH-EC-2016-022826

PATIENT
  Age: 78 Year
  Sex: Male
  Weight: 33.15 kg

DRUGS (28)
  1. FERROUS SULFATE. [Concomitant]
     Active Substance: FERROUS SULFATE
  2. LYRICA [Concomitant]
     Active Substance: PREGABALIN
  3. OXYCODONE [Concomitant]
     Active Substance: OXYCODONE
  4. LENVATINIB [Suspect]
     Active Substance: LENVATINIB
     Indication: SQUAMOUS CELL CARCINOMA OF LUNG
     Route: 048
     Dates: start: 20161026, end: 20161127
  5. ALBUTEROL. [Concomitant]
     Active Substance: ALBUTEROL
  6. SM NON-ASPIRIN SINUS PO [Concomitant]
  7. COLACE [Concomitant]
     Active Substance: DOCUSATE SODIUM
  8. IPRATROPIUM [Concomitant]
     Active Substance: IPRATROPIUM
  9. FENTANYL. [Concomitant]
     Active Substance: FENTANYL
  10. CLARITIN [Concomitant]
     Active Substance: LORATADINE
  11. ZAFIRLUKAST. [Concomitant]
     Active Substance: ZAFIRLUKAST
  12. DILTIAZEM HCL [Concomitant]
     Active Substance: DILTIAZEM HYDROCHLORIDE
  13. FUROSEMIDE. [Concomitant]
     Active Substance: FUROSEMIDE
  14. POTASSIUM CHLORIDE. [Concomitant]
     Active Substance: POTASSIUM CHLORIDE
  15. MEGESTROL [Concomitant]
     Active Substance: MEGESTROL
  16. CHERATUSSIN AC [Concomitant]
     Active Substance: CODEINE PHOSPHATE\GUAIFENESIN
  17. TIOTROPIUM BROMIDE+OLODATEROL [Concomitant]
     Active Substance: OLODATEROL HYDROCHLORIDE\TIOTROPIUM BROMIDE MONOHYDRATE
  18. BENAZEPRIL [Concomitant]
     Active Substance: BENAZEPRIL HYDROCHLORIDE
  19. ERIBULIN [Suspect]
     Active Substance: ERIBULIN
     Indication: SQUAMOUS CELL CARCINOMA OF LUNG
     Route: 041
     Dates: start: 20161025, end: 20161122
  20. CARBIDOPA-LEVIDOPA-ENTACAPONE [Concomitant]
  21. POLYETHYL GLYCOL -PROPYL GLYCOL [Concomitant]
  22. DEXTROMETHORPHAN GUAIFENESIN [Concomitant]
  23. MYOBLOC IM [Concomitant]
  24. SODIUM CHLORIDE. [Concomitant]
     Active Substance: SODIUM CHLORIDE
  25. ACETAMINOPHEN. [Concomitant]
     Active Substance: ACETAMINOPHEN
  26. IBUPROFEN. [Concomitant]
     Active Substance: IBUPROFEN
  27. DEXTRIN\WHEAT [Concomitant]
     Active Substance: ICODEXTRIN\WHEAT
  28. POLYETHYLENE GLYCOL [Concomitant]
     Active Substance: POLYETHYLENE GLYCOLS

REACTIONS (2)
  - Febrile neutropenia [Recovering/Resolving]
  - Mental status changes [Recovering/Resolving]

NARRATIVE: CASE EVENT DATE: 20161127
